FAERS Safety Report 21008099 (Version 2)
Quarter: 2022Q3

REPORT INFORMATION
  Report Type: Report from Study
  Country: None (occurrence: US)
  Receive Date: 20220627
  Receipt Date: 20220707
  Transmission Date: 20221026
  Serious: Yes (Hospitalization)
  Sender: FDA-Public Use
  Company Number: US-AKCEA THERAPEUTICS, INC.-2022IS003691

PATIENT
  Age: 69 Year
  Sex: Male

DRUGS (2)
  1. TEGSEDI [Suspect]
     Active Substance: INOTERSEN SODIUM
     Indication: Hereditary neuropathic amyloidosis
     Route: 058
     Dates: start: 20190729, end: 20220606
  2. DEVICE [Suspect]
     Active Substance: DEVICE

REACTIONS (2)
  - Hypotension [Unknown]
  - Autonomic nervous system imbalance [Unknown]
